FAERS Safety Report 14092231 (Version 2)
Quarter: 2017Q4

REPORT INFORMATION
  Report Type: Report from Study
  Country: None (occurrence: RO)
  Receive Date: 20171016
  Receipt Date: 20171106
  Transmission Date: 20180321
  Serious: Yes (Hospitalization)
  Sender: FDA-Public Use
  Company Number: RO-ABBVIE-17S-135-2129161-00

PATIENT
  Age: 71 Year
  Sex: Female

DRUGS (19)
  1. VIEKIRAX [Suspect]
     Active Substance: OMBITASVIR\PARITAPREVIR\RITONAVIR
     Indication: HEPATITIS C
     Route: 048
     Dates: start: 20170722
  2. CARVEDILOL. [Concomitant]
     Active Substance: CARVEDILOL
     Indication: AORTIC VALVE STENOSIS
  3. NORVASC [Concomitant]
     Active Substance: AMLODIPINE BESYLATE
     Indication: AORTIC VALVE STENOSIS
  4. PRESTARIUM [Concomitant]
     Active Substance: PERINDOPRIL
     Indication: AORTIC VALVE STENOSIS
  5. FUROSEMID [Concomitant]
     Active Substance: FUROSEMIDE
     Indication: AORTIC VALVE STENOSIS
  6. DIGOXIN. [Concomitant]
     Active Substance: DIGOXIN
     Indication: TRICUSPID VALVE STENOSIS
     Route: 048
  7. FUROSEMID [Concomitant]
     Active Substance: FUROSEMIDE
     Indication: TRICUSPID VALVE STENOSIS
     Route: 048
  8. EXVIERA [Suspect]
     Active Substance: DASABUVIR
     Indication: HEPATITIS C
     Route: 048
     Dates: start: 20170722
  9. PRESTARIUM [Concomitant]
     Active Substance: PERINDOPRIL
     Indication: TRICUSPID VALVE STENOSIS
     Route: 048
  10. TAROSIN [Concomitant]
     Indication: DIARRHOEA HAEMORRHAGIC
     Route: 048
  11. NORVASC [Concomitant]
     Active Substance: AMLODIPINE BESYLATE
     Indication: TRICUSPID VALVE STENOSIS
     Route: 048
  12. CARVEDILOL. [Concomitant]
     Active Substance: CARVEDILOL
     Indication: TRICUSPID VALVE STENOSIS
     Route: 048
  13. LEVEMIR [Concomitant]
     Active Substance: INSULIN DETEMIR
     Indication: DIABETES MELLITUS
     Route: 051
  14. VIEKIRAX [Suspect]
     Active Substance: OMBITASVIR\PARITAPREVIR\RITONAVIR
     Indication: HEPATIC CIRRHOSIS
  15. EXVIERA [Suspect]
     Active Substance: DASABUVIR
     Indication: HEPATIC CIRRHOSIS
  16. DIGOXIN. [Concomitant]
     Active Substance: DIGOXIN
     Indication: AORTIC VALVE STENOSIS
  17. SINTROM [Concomitant]
     Active Substance: ACENOCOUMAROL
     Indication: TRICUSPID VALVE STENOSIS
     Route: 048
     Dates: end: 201709
  18. SINTROM [Concomitant]
     Active Substance: ACENOCOUMAROL
     Indication: AORTIC VALVE STENOSIS
  19. DEBRIDAT [Concomitant]
     Active Substance: TRIMEBUTINE MALEATE
     Indication: DIARRHOEA HAEMORRHAGIC
     Route: 048

REACTIONS (5)
  - Abdominal pain [Unknown]
  - Haemoglobin decreased [Not Recovered/Not Resolved]
  - Malaise [Unknown]
  - Fatigue [Unknown]
  - Diarrhoea haemorrhagic [Not Recovered/Not Resolved]

NARRATIVE: CASE EVENT DATE: 201709
